FAERS Safety Report 7909117-8 (Version None)
Quarter: 2011Q4

REPORT INFORMATION
  Report Type: 
  Country: None (occurrence: None)
  Receive Date: 20111108
  Receipt Date: 20111027
  Transmission Date: 20120403
  Serious: Yes (Other)
  Sender: FDA-Public Use
  Company Number: 2011SP038415

PATIENT
  Age: 62 Year
  Sex: Female
  Weight: 59.8748 kg

DRUGS (20)
  1. VICTRELIS [Suspect]
     Indication: HEPATITIS C
     Dosage: 2400 MG;QD;PO
     Route: 048
     Dates: start: 20110614, end: 20110912
  2. OXY 10 BALANCE [Concomitant]
  3. TRIAMCINOLONE [Concomitant]
  4. PEGASYS [Suspect]
     Indication: HEPATITIS C
     Dosage: 180 MCG;QW;SC
     Route: 058
     Dates: start: 20110318
  5. SYNTHROID [Concomitant]
  6. CALCIUM [Concomitant]
  7. ASPIR-81 [Concomitant]
  8. RIBASPHERE [Suspect]
     Indication: HEPATITIS C
     Dosage: 600 MG;QAM, 400 MG;QPM, 400 MG;BID, 400 MG;QAM, 200 MG;QPM
     Dates: start: 20110318, end: 20110621
  9. RIBASPHERE [Suspect]
     Indication: HEPATITIS C
     Dosage: 600 MG;QAM, 400 MG;QPM, 400 MG;BID, 400 MG;QAM, 200 MG;QPM
     Dates: start: 20110912
  10. RIBASPHERE [Suspect]
     Indication: HEPATITIS C
     Dosage: 600 MG;QAM, 400 MG;QPM, 400 MG;BID, 400 MG;QAM, 200 MG;QPM
     Dates: start: 20110318, end: 20110621
  11. RIBASPHERE [Suspect]
     Indication: HEPATITIS C
     Dosage: 600 MG;QAM, 400 MG;QPM, 400 MG;BID, 400 MG;QAM, 200 MG;QPM
     Dates: start: 20110622, end: 20110911
  12. RIBASPHERE [Suspect]
     Indication: HEPATITIS C
     Dosage: 600 MG;QAM, 400 MG;QPM, 400 MG;BID, 400 MG;QAM, 200 MG;QPM
     Dates: start: 20110912
  13. VITAMIN D [Concomitant]
  14. ESTRATEST [Concomitant]
  15. PROCRIT [Concomitant]
  16. CALCITRIOL [Concomitant]
  17. OXYCONTIN [Concomitant]
  18. PROMETRIUM [Concomitant]
  19. HYDROCHLOROTHIAZIDE [Concomitant]
  20. NYSTATIN [Concomitant]

REACTIONS (3)
  - PAIN [None]
  - DYSGEUSIA [None]
  - FATIGUE [None]
